FAERS Safety Report 4815699-5 (Version None)
Quarter: 2005Q4

REPORT INFORMATION
  Report Type: 
  Country: None (occurrence: None)
  Receive Date: 20051027
  Receipt Date: 20051010
  Transmission Date: 20060501
  Serious: Yes (Life-Threatening)
  Sender: FDA-Public Use
  Company Number: 2005RR-00918

PATIENT
  Age: 67 Year
  Sex: Female

DRUGS (10)
  1. HISTAC                (RANITIDINE) [Suspect]
     Dosage: 150 MG, BID
     Route: 048
  2. CYCLOPHOSPHAMIDE [Suspect]
     Dosage: 200 MG, INTRAVENOUS
     Route: 042
     Dates: start: 20050914
  3. DOXORUBICIN HCL [Suspect]
     Dosage: 40 MG, INTRAVENOUS
     Route: 042
     Dates: start: 20050914
  4. PREDNISONE [Suspect]
     Dosage: ORAL
     Route: 048
  5. VINCRISTINE [Suspect]
     Dosage: 2 MG, QD, INTRAVENOUS
     Route: 042
  6. REPAGLINIDE [Concomitant]
  7. DIHYDROCODEINE                               (DIHYDROCODEINE) [Concomitant]
  8. TRAMADOL HYDROCHLORIDE [Concomitant]
  9. CEFTRIAXONE [Concomitant]
  10. CLARITHROMYCIN [Concomitant]

REACTIONS (3)
  - ANAEMIA [None]
  - NEUTROPENIA [None]
  - THROMBOCYTOPENIA [None]
